FAERS Safety Report 10943944 (Version 1)
Quarter: 2015Q1

REPORT INFORMATION
  Report Type: Spontaneous
  Country: JP (occurrence: JP)
  Receive Date: 20150323
  Receipt Date: 20150323
  Transmission Date: 20150721
  Serious: Yes (Death)
  Sender: FDA-Public Use
  Company Number: JP-ROCHE-1426905

PATIENT
  Age: 76 Year
  Sex: Female

DRUGS (1)
  1. MIRCERA [Suspect]
     Active Substance: PEGZEREPOETIN ALFA
     Indication: NEPHROGENIC ANAEMIA
     Route: 042
     Dates: start: 20120119, end: 20120501

REACTIONS (2)
  - Respiratory failure [Fatal]
  - Sepsis [Fatal]

NARRATIVE: CASE EVENT DATE: 20120918
